FAERS Safety Report 7784161-2 (Version None)
Quarter: 2011Q3

REPORT INFORMATION
  Report Type: 
  Country: None (occurrence: None)
  Receive Date: 20110928
  Receipt Date: 20110919
  Transmission Date: 20111222
  Serious: Yes (Death)
  Sender: FDA-Public Use
  Company Number: US-ELI_LILLY_AND_COMPANY-US201108005562

PATIENT
  Sex: Female

DRUGS (1)
  1. FORTEO [Suspect]
     Indication: OSTEOPOROSIS
     Dosage: UNK, UNKNOWN
     Route: 065
     Dates: start: 20030301, end: 20040101

REACTIONS (4)
  - FALL [None]
  - INJECTION SITE HAEMORRHAGE [None]
  - PNEUMONIA [None]
  - INJECTION SITE HAEMATOMA [None]
